FAERS Safety Report 5398909-8 (Version None)
Quarter: 2007Q3

REPORT INFORMATION
  Report Type: 
  Country: None (occurrence: None)
  Receive Date: 20070724
  Receipt Date: 20070724
  Transmission Date: 20080115
  Serious: Yes (Hospitalization)
  Sender: FDA-Public Use
  Company Number: None

PATIENT
  Age: 44 Year
  Sex: Male

DRUGS (1)
  1. ZYPREXA [Suspect]
     Indication: PSYCHOTIC DISORDER
     Dosage: 7.5 MG AT BEDTIME PO
     Route: 048

REACTIONS (5)
  - CONFUSIONAL STATE [None]
  - DIABETIC KETOACIDOSIS [None]
  - DIZZINESS [None]
  - RENAL FAILURE ACUTE [None]
  - TYPE 1 DIABETES MELLITUS [None]
